FAERS Safety Report 9291611 (Version 1)
Quarter: 2013Q2

REPORT INFORMATION
  Report Type: Report from Study
  Country: IT (occurrence: IT)
  Receive Date: 20130515
  Receipt Date: 20130515
  Transmission Date: 20140414
  Serious: Yes (Other)
  Sender: FDA-Public Use
  Company Number: IT-GLAXOSMITHKLINE-B0891711A

PATIENT
  Age: 45 Year
  Sex: Female

DRUGS (1)
  1. TYVERB [Suspect]
     Indication: BREAST CANCER METASTATIC
     Route: 065

REACTIONS (3)
  - Cardiac failure [Unknown]
  - Pain in extremity [Unknown]
  - Disease progression [Unknown]
